FAERS Safety Report 8122986 (Version 2)
Quarter: 2014Q1

REPORT INFORMATION
  Report Type: Spontaneous
  Country: CA (occurrence: CA)
  Receive Date: 20110906
  Receipt Date: 20140225
  Transmission Date: 20141002
  Serious: Yes (Other)
  Sender: FDA-Public Use
  Company Number: CA-US-EMD SERONO, INC.-7079166

PATIENT
  Age: 69 Year
  Sex: Female

DRUGS (8)
  1. REBIF [Suspect]
     Indication: MULTIPLE SCLEROSIS
     Route: 058
  2. REBIF [Suspect]
     Route: 058
     Dates: start: 20070509
  3. LIPITOR [Concomitant]
     Route: 048
  4. PANTOLOC [Concomitant]
     Route: 048
  5. GLYCON [Concomitant]
     Route: 048
  6. ASA [Concomitant]
  7. CITALOPRAM HYDROBROMIDE [Concomitant]
  8. VITAMIN D                          /00107901/ [Concomitant]

REACTIONS (6)
  - Clavicle fracture [Unknown]
  - Grand mal convulsion [Unknown]
  - Thrombosis [Unknown]
  - Anxiety [Recovering/Resolving]
  - Depression [Recovering/Resolving]
  - Injection site erythema [Not Recovered/Not Resolved]
